FAERS Safety Report 6717104-0 (Version None)
Quarter: 2010Q2

REPORT INFORMATION
  Report Type: 
  Country: None (occurrence: None)
  Receive Date: 20100510
  Receipt Date: 20100426
  Transmission Date: 20101027
  Serious: Yes (Disabling)
  Sender: FDA-Public Use
  Company Number: FR-CELGENEUS-056-50794-10040289

PATIENT
  Sex: Male

DRUGS (4)
  1. VIDAZA [Suspect]
     Route: 050
     Dates: start: 20100101
  2. VIDAZA [Suspect]
     Indication: REFRACTORY ANAEMIA
  3. ALLOPURINOL [Concomitant]
     Indication: GOUT
     Route: 065
  4. ANTI-INFLAMMATORIES [Concomitant]
     Indication: GOUT
     Route: 065

REACTIONS (2)
  - GOUT [None]
  - NO THERAPEUTIC RESPONSE [None]
